FAERS Safety Report 21016641 (Version 4)
Quarter: 2022Q3

REPORT INFORMATION
  Report Type: Report from Study
  Country: US (occurrence: US)
  Receive Date: 20220628
  Receipt Date: 20220915
  Transmission Date: 20221026
  Serious: No
  Sender: FDA-Public Use
  Company Number: US-NOVARTISTESTPH-NVSC2022US147433

PATIENT
  Age: 56 Year
  Sex: Female
  Weight: 63.503 kg

DRUGS (1)
  1. KESIMPTA [Suspect]
     Active Substance: OFATUMUMAB
     Indication: COVID-19
     Dosage: 20MG/0.4ML, QMO
     Route: 058
     Dates: start: 20220623, end: 20220627

REACTIONS (3)
  - Influenza like illness [Recovered/Resolved]
  - COVID-19 [Unknown]
  - Tooth disorder [Unknown]

NARRATIVE: CASE EVENT DATE: 20220623
